FAERS Safety Report 6149544-5 (Version None)
Quarter: 2009Q2

REPORT INFORMATION
  Report Type: 
  Country: None (occurrence: None)
  Receive Date: 20090409
  Receipt Date: 20090401
  Transmission Date: 20091009
  Serious: Yes (Disabling)
  Sender: FDA-Public Use
  Company Number: FR-ASTRAZENECA-2009CG00629

PATIENT
  Age: 16 Month
  Sex: Female

DRUGS (3)
  1. EMLA [Suspect]
     Indication: LOCAL ANAESTHESIA
     Route: 061
     Dates: start: 20090327, end: 20090327
  2. INFANRIX [Concomitant]
     Indication: IMMUNISATION
     Dates: start: 20090327, end: 20090327
  3. PREVENAR [Concomitant]
     Indication: IMMUNISATION
     Dates: start: 20090327, end: 20090327

REACTIONS (1)
  - GAIT DISTURBANCE [None]
